FAERS Safety Report 8260793-2 (Version None)
Quarter: 2012Q2

REPORT INFORMATION
  Report Type: 
  Country: None (occurrence: None)
  Receive Date: 20120405
  Receipt Date: 20120322
  Transmission Date: 20120825
  Serious: Yes (Other)
  Sender: FDA-Public Use
  Company Number: DE-PAR PHARMACEUTICAL, INC-2012SCPR004287

PATIENT

DRUGS (15)
  1. VENLAFAXINE [Interacting]
     Dosage: 150 MG, / DAY
     Route: 065
  2. LORAZEPAM [Concomitant]
     Indication: INSOMNIA
  3. VENLAFAXINE [Interacting]
     Dosage: 75 MG, / DAY; ON DAY 2
     Route: 065
  4. VENLAFAXINE [Interacting]
     Indication: MAJOR DEPRESSION
     Dosage: 37.5 MG, / DAY; ON DAY 1
     Route: 065
  5. VENLAFAXINE [Interacting]
     Dosage: 75 MG, / DAY; ON DAY 29
     Route: 065
  6. LITHIUM CARBONATE [Concomitant]
     Indication: MAJOR DEPRESSION
     Dosage: 800 MG, / DAY
     Route: 065
  7. BISOPROLOL FUMARATE [Concomitant]
     Indication: ESSENTIAL HYPERTENSION
     Dosage: 2.5 MG, / DAY
     Route: 065
  8. LORAZEPAM [Concomitant]
     Indication: ANXIETY
  9. VENLAFAXINE [Interacting]
     Dosage: 225 MG, / DAY; ON DAY 16
     Route: 065
  10. VENLAFAXINE [Interacting]
     Dosage: 225 MG, / DAY
     Route: 065
  11. FLUOXETINE [Suspect]
     Indication: MAJOR DEPRESSION
     Dosage: 60 MG, / DAY
     Route: 065
  12. VENLAFAXINE [Interacting]
     Dosage: 150 MG, / DAY; ON DAY 8
     Route: 065
  13. LORAZEPAM [Concomitant]
     Indication: AGITATION
     Dosage: 3 MG, / DAY
     Route: 065
  14. LEVOTHYROXINE SODIUM [Concomitant]
     Indication: HYPOTHYROIDISM
     Dosage: 125 MCG, / DAY
     Route: 065
  15. ZOPICLONE [Concomitant]
     Indication: PRODUCT USED FOR UNKNOWN INDICATION
     Dosage: 7.5 MG, UNKNOWN
     Route: 065

REACTIONS (6)
  - DRUG INTERACTION [None]
  - AGITATION [None]
  - FEELING HOT [None]
  - TREMOR [None]
  - CONSTIPATION [None]
  - ANTIDEPRESSANT DRUG LEVEL ABOVE THERAPEUTIC [None]
